FAERS Safety Report 20589677 (Version 1)
Quarter: 2022Q1

REPORT INFORMATION
  Report Type: Spontaneous
  Country: US (occurrence: None)
  Receive Date: 20220314
  Receipt Date: 20220314
  Transmission Date: 20220424
  Serious: Yes (Hospitalization)
  Sender: FDA-Public Use
  Company Number: None

PATIENT
  Sex: Female

DRUGS (1)
  1. NUCALA [Suspect]
     Active Substance: MEPOLIZUMAB
     Indication: Asthma
     Dosage: OTHER FREQUENCY : EVERY28DAYS;?
     Route: 058

REACTIONS (6)
  - Fatigue [None]
  - Chest pain [None]
  - Flushing [None]
  - Diarrhoea [None]
  - Dyspnoea [None]
  - Back pain [None]
